FAERS Safety Report 5760617-9 (Version None)
Quarter: 2008Q2

REPORT INFORMATION
  Report Type: 
  Country: None (occurrence: None)
  Receive Date: 20080602
  Receipt Date: 20080519
  Transmission Date: 20081010
  Serious: Yes (Hospitalization)
  Sender: FDA-Public Use
  Company Number: 2008S1007029

PATIENT
  Age: 49 Year
  Sex: Male

DRUGS (3)
  1. FENTANYL [Suspect]
     Indication: BACK PAIN
     Dosage: 25 UG; ONCE;TRANSDERMAL
     Route: 062
     Dates: start: 20080318, end: 20080319
  2. FENTANYL [Suspect]
     Indication: PAIN
     Dosage: 25 UG; ONCE;TRANSDERMAL
     Route: 062
     Dates: start: 20080318, end: 20080319
  3. FENTANYL [Suspect]
     Indication: SCIATICA
     Dosage: 25 UG; ONCE;TRANSDERMAL
     Route: 062
     Dates: start: 20080318, end: 20080319

REACTIONS (5)
  - ANXIETY [None]
  - CHEST PAIN [None]
  - DYSPNOEA [None]
  - HEART RATE IRREGULAR [None]
  - NAUSEA [None]
